FAERS Safety Report 17705154 (Version 1)
Quarter: 2020Q2

REPORT INFORMATION
  Report Type: Spontaneous
  Country: US (occurrence: US)
  Receive Date: 20200424
  Receipt Date: 20200424
  Transmission Date: 20200714
  Serious: No
  Sender: FDA-Public Use
  Company Number: US-PFIZER INC-2020163338

PATIENT
  Age: 68 Year
  Sex: Female
  Weight: 53.98 kg

DRUGS (1)
  1. ESTRING [Suspect]
     Active Substance: ESTRADIOL
     Dosage: UNK

REACTIONS (8)
  - Hot flush [Not Recovered/Not Resolved]
  - Nausea [Unknown]
  - Manufacturing product shipping issue [Unknown]
  - Crying [Unknown]
  - Fatigue [Unknown]
  - Product dose omission [Unknown]
  - Back pain [Unknown]
  - Muscle spasms [Unknown]

NARRATIVE: CASE EVENT DATE: 202003
